FAERS Safety Report 8986183 (Version 1)
Quarter: 2012Q4

REPORT INFORMATION
  Report Type: Spontaneous
  Country: US (occurrence: None)
  Receive Date: 20121214
  Receipt Date: 20121214
  Transmission Date: 20130627
  Serious: Yes (Other)
  Sender: FDA-Public Use
  Company Number: 1080578

PATIENT
  Age: 2 Month
  Sex: Female
  Weight: 4.54 kg

DRUGS (1)
  1. LITTLE FEVERS CHILDRENS FEVER PAIN RELIEVER [Suspect]
     Route: 048
     Dates: start: 20121113, end: 20121127

REACTIONS (4)
  - Choking [None]
  - Cough [None]
  - Dyspnoea [None]
  - Respiratory arrest [None]
